FAERS Safety Report 9322501 (Version 1)
Quarter: 2013Q2

REPORT INFORMATION
  Report Type: Spontaneous
  Country: FR (occurrence: FR)
  Receive Date: 20130531
  Receipt Date: 20130531
  Transmission Date: 20140414
  Serious: Yes (Other)
  Sender: FDA-Public Use
  Company Number: PHHY2013FR053918

PATIENT
  Age: 2 Year
  Sex: Male

DRUGS (2)
  1. VINBLASTINE [Suspect]
     Indication: LANGERHANS^ CELL HISTIOCYTOSIS
  2. PREDNISOLONE [Suspect]
     Indication: LANGERHANS^ CELL HISTIOCYTOSIS

REACTIONS (6)
  - Langerhans^ cell histiocytosis [Unknown]
  - Hypoalbuminaemia [Unknown]
  - Bone lesion [Unknown]
  - Anaemia [Unknown]
  - Disease recurrence [Unknown]
  - Drug resistance [Unknown]
